FAERS Safety Report 8436494 (Version 8)
Quarter: 2013Q1

REPORT INFORMATION
  Report Type: Spontaneous
  Country: US (occurrence: US)
  Receive Date: 20120301
  Receipt Date: 20130213
  Transmission Date: 20140127
  Serious: Yes (Hospitalization, Disabling, Other)
  Sender: FDA-Public Use
  Company Number: US-009507513-1202USA04367

PATIENT
  Sex: Female
  Weight: 69.48 kg

DRUGS (8)
  1. FOSAMAX [Suspect]
     Indication: OSTEOPOROSIS
     Dosage: UNK
     Route: 048
     Dates: start: 19980127, end: 20080315
  2. FOSAMAX [Suspect]
     Dosage: 20 MG, UNK
     Route: 048
     Dates: start: 2000, end: 2003
  3. FOSAMAX [Suspect]
     Dosage: 70 MG, QW
     Route: 048
     Dates: end: 2008
  4. FOSAMAX [Suspect]
     Dosage: 10 MG, UNK
     Route: 048
     Dates: start: 20000131, end: 20010125
  5. ESTRATAB [Concomitant]
     Indication: PREMATURE MENOPAUSE
  6. CALTRATE [Concomitant]
     Indication: OSTEOPOROSIS
     Dosage: 1200 MG, UNK
     Dates: start: 199908
  7. VITAMIN D (UNSPECIFIED) [Concomitant]
     Indication: OSTEOPOROSIS
     Dosage: 50000 IU, QW
     Dates: start: 199908
  8. AEROBID [Concomitant]
     Indication: ASTHMA

REACTIONS (72)
  - Femur fracture [Unknown]
  - Low turnover osteopathy [Unknown]
  - Femur fracture [Unknown]
  - Impaired healing [Unknown]
  - Tonsillectomy [Unknown]
  - Salpingo-oophorectomy bilateral [Unknown]
  - Open reduction of fracture [Unknown]
  - Basal cell carcinoma [Unknown]
  - Hysterectomy [Unknown]
  - Breast cyst [Unknown]
  - Closed fracture manipulation [Unknown]
  - Foot fracture [Unknown]
  - Foot fracture [Unknown]
  - Femur fracture [Recovered/Resolved]
  - Bursitis [Unknown]
  - Tendonitis [Unknown]
  - Groin pain [Unknown]
  - Hypothyroidism [Unknown]
  - Laceration [Unknown]
  - Wisdom teeth removal [Unknown]
  - Skin papilloma [Unknown]
  - Inappropriate schedule of drug administration [Unknown]
  - Spinal osteoarthritis [Recovering/Resolving]
  - Osteoarthritis [Unknown]
  - Intervertebral disc space narrowing [Unknown]
  - Vertebral wedging [Unknown]
  - Intervertebral disc disorder [Unknown]
  - Body height decreased [Unknown]
  - Bone density decreased [Unknown]
  - Fall [Unknown]
  - Iliotibial band syndrome [Unknown]
  - Sciatica [Unknown]
  - Blood parathyroid hormone abnormal [Unknown]
  - Anaemia [Unknown]
  - Sinusitis [Not Recovered/Not Resolved]
  - Bursitis [Unknown]
  - Stress [Unknown]
  - Kyphosis [Unknown]
  - Gait disturbance [Unknown]
  - Spondylolisthesis [Unknown]
  - Mitral valve incompetence [Unknown]
  - Tricuspid valve incompetence [Unknown]
  - Pulmonary valve incompetence [Unknown]
  - Pulmonary arterial pressure increased [Unknown]
  - Seborrhoeic dermatitis [Unknown]
  - Actinic keratosis [Unknown]
  - Seborrhoeic keratosis [Unknown]
  - Seborrhoeic keratosis [Unknown]
  - Skin papilloma [Unknown]
  - Arteriosclerosis coronary artery [Unknown]
  - Sleep disorder [Unknown]
  - Arthritis [Unknown]
  - Patellofemoral pain syndrome [Unknown]
  - Fibrocystic breast disease [Unknown]
  - C-reactive protein increased [Unknown]
  - Palpitations [Unknown]
  - Insomnia [Unknown]
  - Gastrointestinal disorder [Unknown]
  - Ligament sprain [Unknown]
  - Limb discomfort [Unknown]
  - Rash [Not Recovered/Not Resolved]
  - Drug ineffective [Unknown]
  - Drug ineffective [Unknown]
  - Drug hypersensitivity [Unknown]
  - Drug hypersensitivity [Unknown]
  - Drug hypersensitivity [Unknown]
  - Drug ineffective [Unknown]
  - Rash [Unknown]
  - Headache [Unknown]
  - Hyperventilation [Unknown]
  - Chronic obstructive pulmonary disease [Unknown]
  - Eustachian tube dysfunction [Unknown]
